FAERS Safety Report 15296433 (Version 1)
Quarter: 2018Q3

REPORT INFORMATION
  Report Type: Spontaneous
  Country: US (occurrence: US)
  Receive Date: 20180820
  Receipt Date: 20180820
  Transmission Date: 20181010
  Serious: Yes (Other)
  Sender: FDA-Public Use
  Company Number: US-ASTELLAS-2018US028951

PATIENT
  Age: 17 Year
  Sex: Female
  Weight: 32 kg

DRUGS (1)
  1. AMBISOME [Suspect]
     Active Substance: AMPHOTERICIN B
     Indication: INFECTION
     Route: 042
     Dates: start: 201804

REACTIONS (4)
  - Blood creatinine increased [Unknown]
  - Hypokalaemia [Unknown]
  - Off label use [Unknown]
  - Product use in unapproved indication [Unknown]
